FAERS Safety Report 24218209 (Version 3)
Quarter: 2024Q3

REPORT INFORMATION
  Report Type: Spontaneous
  Country: US (occurrence: US)
  Receive Date: 20240816
  Receipt Date: 20240828
  Transmission Date: 20241016
  Serious: No
  Sender: PFIZER
  Company Number: US-PFIZER INC-202400237740

PATIENT
  Age: 62 Year
  Sex: Male
  Weight: 104.31 kg

DRUGS (10)
  1. MEKTOVI [Suspect]
     Active Substance: BINIMETINIB
     Indication: Neoplasm malignant
     Dosage: 45 MG, 2X/DAY
     Route: 048
     Dates: start: 20240716
  2. BRAFTOVI [Suspect]
     Active Substance: ENCORAFENIB
     Indication: Neoplasm malignant
     Dosage: 450 MG, 1X/DAY
     Route: 048
     Dates: start: 20240716
  3. AMLODIPINE [Concomitant]
     Active Substance: AMLODIPINE BESYLATE
     Indication: Blood pressure abnormal
     Dosage: 10 MG, 1X/DAY
  4. AMOXICILLIN [Concomitant]
     Active Substance: AMOXICILLIN
     Indication: Tooth extraction
     Dosage: 500 MG, 3X/DAY
  5. BENAZEPRIL [Concomitant]
     Active Substance: BENAZEPRIL HYDROCHLORIDE
     Indication: Blood pressure abnormal
     Dosage: 40 MG, 1X/DAY
  6. HYDROMORPHONE [Concomitant]
     Active Substance: HYDROMORPHONE
     Indication: Pain management
     Dosage: 2 MG, 2X/DAY
  7. IBUPROFEN [Concomitant]
     Active Substance: IBUPROFEN
     Indication: Pain management
     Dosage: 800 MG, 3X/DAY
  8. METFORMIN [Concomitant]
     Active Substance: METFORMIN HYDROCHLORIDE
     Indication: Blood glucose abnormal
     Dosage: 1000 MG, 1X/DAY
  9. MORPHINE [Concomitant]
     Active Substance: MORPHINE
     Indication: Pain management
     Dosage: 30 MG, 2X/DAY
  10. TYLENOL [Concomitant]
     Active Substance: ACETAMINOPHEN
     Indication: Pain management
     Dosage: 1000 MG, 3X/DAY

REACTIONS (1)
  - Pigmentation disorder [Not Recovered/Not Resolved]

NARRATIVE: CASE EVENT DATE: 20240801
